FAERS Safety Report 8908542 (Version 2)
Quarter: 2013Q1

REPORT INFORMATION
  Report Type: Spontaneous
  Country: IT (occurrence: IT)
  Receive Date: 20121114
  Receipt Date: 20130301
  Transmission Date: 20140127
  Serious: Yes (Other)
  Sender: FDA-Public Use
  Company Number: IT-PFIZER INC-2012284795

PATIENT
  Age: 44 Year
  Sex: Male

DRUGS (7)
  1. XANAX [Suspect]
     Indication: INSOMNIA
     Dosage: UNK
     Route: 048
  2. XANAX [Suspect]
     Dosage: UNK (INDETERMINABLE DOSAGE, REPORTED AS EXCESSIVE)
     Route: 048
     Dates: start: 20120618
  3. TAVOR [Concomitant]
     Dosage: 1 MG, UNK
     Route: 048
  4. ARIPIPRAZOLE [Concomitant]
     Dosage: UNK
  5. DALMADORM [Concomitant]
     Dosage: 15 MG, UNK
     Route: 048
  6. LEPONEX ^NOVARTIS^ [Concomitant]
     Dosage: 25 MG, UNK
  7. GARDENALE [Concomitant]
     Dosage: 50 MG, UNK

REACTIONS (3)
  - Overdose [Recovering/Resolving]
  - Miosis [Recovering/Resolving]
  - Sopor [Recovering/Resolving]
